FAERS Safety Report 15291686 (Version 2)
Quarter: 2018Q3

REPORT INFORMATION
  Report Type: Spontaneous
  Country: FR (occurrence: FR)
  Receive Date: 20180817
  Receipt Date: 20180905
  Transmission Date: 20181010
  Serious: Yes (Hospitalization)
  Sender: FDA-Public Use
  Company Number: PHHY2018FR073116

PATIENT
  Age: 74 Year
  Sex: Female
  Weight: 48 kg

DRUGS (1)
  1. BRINZOLAMIDE [Suspect]
     Active Substance: BRINZOLAMIDE
     Indication: GLAUCOMA
     Dosage: 2 DF, QD
     Route: 047
     Dates: start: 20171011, end: 20180525

REACTIONS (1)
  - Balance disorder [Recovering/Resolving]

NARRATIVE: CASE EVENT DATE: 20180103
